FAERS Safety Report 8273623-X (Version None)
Quarter: 2012Q2

REPORT INFORMATION
  Report Type: 
  Country: None (occurrence: None)
  Receive Date: 20120411
  Receipt Date: 20120224
  Transmission Date: 20120825
  Serious: No
  Sender: FDA-Public Use
  Company Number: US-TEVA-321546USA

PATIENT
  Age: 58 Year
  Sex: Male

DRUGS (6)
  1. NUVIGIL [Suspect]
     Indication: SOMNOLENCE
     Route: 048
     Dates: end: 20110101
  2. AMBIEN CR [Concomitant]
     Dosage: 12.5 MILLIGRAM;
  3. NEXIUM [Concomitant]
  4. EFFEXOR XR [Concomitant]
     Dosage: 225 MILLIGRAM;
     Route: 048
  5. WELLBUTRIN XL [Concomitant]
  6. ALPRAZOLAM [Concomitant]
     Route: 048

REACTIONS (1)
  - TARDIVE DYSKINESIA [None]
